FAERS Safety Report 19744814 (Version 1)
Quarter: 2021Q3

REPORT INFORMATION
  Report Type: Spontaneous
  Country: IT (occurrence: IT)
  Receive Date: 20210825
  Receipt Date: 20210825
  Transmission Date: 20211014
  Serious: Yes (Other)
  Sender: FDA-Public Use
  Company Number: IT-AMGEN-ITASP2021098165

PATIENT
  Age: 44 Year
  Sex: Male

DRUGS (2)
  1. ARCOXIA [Suspect]
     Active Substance: ETORICOXIB
     Indication: PAIN
     Dosage: 90 MILLIGRAM, AS NECESSARY(PRN)
     Route: 048
     Dates: start: 20210410
  2. AIMOVIG [Suspect]
     Active Substance: ERENUMAB-AOOE
     Indication: MIGRAINE
     Dosage: 140 MILLIGRAM
     Route: 058
     Dates: start: 20210410, end: 20210410

REACTIONS (8)
  - Urticaria [Unknown]
  - Anaphylactoid reaction [Unknown]
  - Rash [Unknown]
  - Anaphylactic reaction [Unknown]
  - Lip oedema [Recovered/Resolved]
  - Type I hypersensitivity [Unknown]
  - Erythema [Recovered/Resolved]
  - Malaise [Recovered/Resolved]

NARRATIVE: CASE EVENT DATE: 20210410
